FAERS Safety Report 6704201-9 (Version None)
Quarter: 2010Q2

REPORT INFORMATION
  Report Type: 
  Country: None (occurrence: None)
  Receive Date: 20100423
  Receipt Date: 20100121
  Transmission Date: 20101027
  Serious: No
  Sender: FDA-Public Use
  Company Number: ALL1-2010-00331

PATIENT
  Age: 8 Year
  Sex: Male
  Weight: 26.1 kg

DRUGS (3)
  1. VYVANSE [Suspect]
     Indication: ATTENTION DEFICIT/HYPERACTIVITY DISORDER
     Dosage: MG, 1/DAY:QD, ORAL, 70 MG, 1/DAY:QD, ORAL, 40 MG, 1X/DAY:QD, ORAL
     Route: 048
     Dates: start: 20081101, end: 20090501
  2. VYVANSE [Suspect]
     Indication: ATTENTION DEFICIT/HYPERACTIVITY DISORDER
     Dosage: MG, 1/DAY:QD, ORAL, 70 MG, 1/DAY:QD, ORAL, 40 MG, 1X/DAY:QD, ORAL
     Route: 048
     Dates: start: 20090101, end: 20091101
  3. VYVANSE [Suspect]
     Indication: ATTENTION DEFICIT/HYPERACTIVITY DISORDER
     Dosage: MG, 1/DAY:QD, ORAL, 70 MG, 1/DAY:QD, ORAL, 40 MG, 1X/DAY:QD, ORAL
     Route: 048
     Dates: start: 20091101, end: 20100120

REACTIONS (9)
  - CONDITION AGGRAVATED [None]
  - DECREASED APPETITE [None]
  - DISTURBANCE IN ATTENTION [None]
  - DYSPHONIA [None]
  - EDUCATIONAL PROBLEM [None]
  - GROWTH RETARDATION [None]
  - MEMORY IMPAIRMENT [None]
  - TIC [None]
  - TOURETTE'S DISORDER [None]
